FAERS Safety Report 7561680-5 (Version None)
Quarter: 2011Q2

REPORT INFORMATION
  Report Type: 
  Country: None (occurrence: None)
  Receive Date: 20110621
  Receipt Date: 20101015
  Transmission Date: 20111010
  Serious: No
  Sender: FDA-Public Use
  Company Number: US-ASTRAZENECA-2010SE48811

PATIENT
  Age: 10 Year
  Sex: Female
  Weight: 52.2 kg

DRUGS (4)
  1. RHINOCORT [Suspect]
     Route: 045
  2. PEPCID AC [Concomitant]
  3. TYLENOL (PM) [Concomitant]
  4. CLARITIN [Concomitant]

REACTIONS (2)
  - HEADACHE [None]
  - DRUG DOSE OMISSION [None]
